FAERS Safety Report 5270565-9 (Version None)
Quarter: 2007Q1

REPORT INFORMATION
  Report Type: 
  Country: None (occurrence: None)
  Receive Date: 20070315
  Receipt Date: 20070302
  Transmission Date: 20070707
  Serious: Yes (Other)
  Sender: FDA-Public Use
  Company Number: 26435

PATIENT
  Age: 72 Year
  Sex: Female
  Weight: 81.6475 kg

DRUGS (7)
  1. NIASPAN [Suspect]
     Indication: BLOOD CHOLESTEROL INCREASED
     Dosage: 2000 MG QHS PO
     Route: 048
     Dates: start: 20070301, end: 20070302
  2. ASPIRIN [Concomitant]
  3. DIOVAN [Concomitant]
  4. PREVACID [Concomitant]
  5. SYNTHROID [Concomitant]
  6. PAXIL [Concomitant]
  7. PROVENTIL /USA/ [Concomitant]

REACTIONS (6)
  - ERYTHEMA [None]
  - FEELING HOT [None]
  - FLUSHING [None]
  - INCORRECT DOSE ADMINISTERED [None]
  - MEDICATION ERROR [None]
  - PRURITUS [None]
